FAERS Safety Report 23302932 (Version 1)
Quarter: 2023Q4

REPORT INFORMATION
  Report Type: Spontaneous
  Country: US (occurrence: US)
  Receive Date: 20231215
  Receipt Date: 20231215
  Transmission Date: 20240109
  Serious: No
  Sender: FDA-Public Use
  Company Number: US-PRIMUS-2023-US-018247

PATIENT
  Age: 60 Year
  Sex: Male

DRUGS (4)
  1. IMPOYZ [Suspect]
     Active Substance: CLOBETASOL PROPIONATE
     Indication: Product used for unknown indication
     Dosage: APPLY A THIN LAYER TO SKIN TWICE DAILY FOR 2 WEEKS ON AND 1 WEEK OFF
     Route: 061
  2. ATORVASTATIN [Concomitant]
     Active Substance: ATORVASTATIN
     Route: 065
  3. NEXIUM [Concomitant]
     Active Substance: ESOMEPRAZOLE MAGNESIUM
     Route: 065
  4. METFORMIN [Concomitant]
     Active Substance: METFORMIN HYDROCHLORIDE
     Route: 065

REACTIONS (2)
  - Throat irritation [Recovered/Resolved]
  - Dysuria [Recovered/Resolved]
